FAERS Safety Report 5123296-X (Version None)
Quarter: 2006Q4

REPORT INFORMATION
  Report Type: 
  Country: None (occurrence: None)
  Receive Date: 20061009
  Receipt Date: 20061003
  Transmission Date: 20070319
  Serious: Yes (Other)
  Sender: FDA-Public Use
  Company Number: 13519491

PATIENT

DRUGS (3)
  1. LAMIVUDINE [Suspect]
     Indication: HIV INFECTION
  2. EFAVIRENZ [Suspect]
     Indication: HIV INFECTION
  3. STAVUDINE [Suspect]
     Indication: HIV INFECTION

REACTIONS (4)
  - ABDOMINAL DISTENSION [None]
  - ILL-DEFINED DISORDER [None]
  - LIPODYSTROPHY ACQUIRED [None]
  - MUSCLE ATROPHY [None]
